FAERS Safety Report 19382217 (Version 1)
Quarter: 2021Q2

REPORT INFORMATION
  Report Type: Spontaneous
  Country: US (occurrence: US)
  Receive Date: 20210607
  Receipt Date: 20210607
  Transmission Date: 20210717
  Serious: Yes (Other)
  Sender: FDA-Public Use
  Company Number: US-MEDEXUS PHARMA, INC.-2020MED00230

PATIENT
  Sex: Female
  Weight: 55.78 kg

DRUGS (1)
  1. IXINITY [Suspect]
     Active Substance: COAGULATION FACTOR IX RECOMBINANT HUMAN
     Indication: FACTOR IX DEFICIENCY
     Dosage: 2500?3000 IU (MINOR BLEEDS) AND 5000?6000 IU (FOR JOINT/MAJOR BLEEDS), AS NEEDED FOR ON DEMAND
     Route: 042
     Dates: start: 20160912, end: 20200728

REACTIONS (3)
  - Hypersensitivity [Recovered/Resolved]
  - Oropharyngeal pain [Recovered/Resolved]
  - Exposure during pregnancy [Recovered/Resolved]
